FAERS Safety Report 6576941-6 (Version None)
Quarter: 2010Q1

REPORT INFORMATION
  Report Type: 
  Country: None (occurrence: None)
  Receive Date: 20100210
  Receipt Date: 20100201
  Transmission Date: 20100710
  Serious: Yes (Hospitalization, Disabling)
  Sender: FDA-Public Use
  Company Number: FR-AMGEN-US377350

PATIENT
  Sex: Male
  Weight: 77 kg

DRUGS (3)
  1. ENBREL [Suspect]
     Indication: ANKYLOSING SPONDYLITIS
     Dosage: 50 MG; FREQUENCY UNSPECIFIED
     Route: 058
     Dates: start: 20050720, end: 20081216
  2. PARIET [Concomitant]
     Dosage: 20 MG STRENGTH; DOSE UNKNOWN
     Route: 048
     Dates: start: 20000101
  3. HUMIRA [Concomitant]
     Route: 065
     Dates: start: 20081216

REACTIONS (5)
  - ABDOMINAL WALL ABSCESS [None]
  - CROHN'S DISEASE [None]
  - DUODENAL ULCER [None]
  - ILEAL STENOSIS [None]
  - POSTOPERATIVE WOUND INFECTION [None]
